FAERS Safety Report 23078063 (Version 1)
Quarter: 2023Q4

REPORT INFORMATION
  Report Type: Spontaneous
  Country: US (occurrence: US)
  Receive Date: 20231018
  Receipt Date: 20231018
  Transmission Date: 20240109
  Serious: No
  Sender: FDA-Public Use
  Company Number: US-JNJFOC-20231033224

PATIENT
  Sex: Female

DRUGS (1)
  1. XARELTO [Suspect]
     Active Substance: RIVAROXABAN
     Indication: Product used for unknown indication
     Route: 048

REACTIONS (7)
  - Asthenia [Unknown]
  - Dizziness [Unknown]
  - Vision blurred [Unknown]
  - Diarrhoea [Unknown]
  - Back pain [Unknown]
  - Product dose omission issue [Unknown]
  - Anxiety [Unknown]
